FAERS Safety Report 5725880-9 (Version None)
Quarter: 2008Q2

REPORT INFORMATION
  Report Type: 
  Country: None (occurrence: None)
  Receive Date: 20080430
  Receipt Date: 20080421
  Transmission Date: 20081010
  Serious: Yes (Death, Other)
  Sender: FDA-Public Use
  Company Number: 2008010034

PATIENT
  Age: 59 Year
  Sex: Female
  Weight: 83.9 kg

DRUGS (7)
  1. DIPHENHYDRAMINE HCL [Suspect]
     Dosage: 50 MG ONCE (1 IN 1 D)
     Dates: start: 20040311, end: 20040311
  2. DILAUDID [Suspect]
     Indication: PROCEDURAL PAIN
     Dosage: 0.5 MG, 3 DOSES (0.5 MG, 3 IN 1 D), INTRAVENOUS
     Route: 042
     Dates: start: 20040311, end: 20040311
  3. TYLOX (OXYCODONE HYDROCHLORIDE, PARACETAMOL) [Suspect]
     Indication: PROCEDURAL PAIN
     Dosage: 2 TABLETS, 5MG/325MG ONCE (1 IN 1 D), ORAL
     Route: 048
     Dates: start: 20040311, end: 20040311
  4. ANAESTHETICS, GENERAL (ANAESTHETICS, GENERAL) [Suspect]
     Indication: SPINAL FUSION SURGERY
     Dates: start: 20040311, end: 20040311
  5. METOPROLOL TARTRATE [Concomitant]
  6. AMLODIPINE [Concomitant]
  7. ACETYLSALICYLIC ACID SRT [Concomitant]

REACTIONS (2)
  - ANAPHYLACTIC SHOCK [None]
  - CARDIO-RESPIRATORY ARREST [None]
